FAERS Safety Report 4330424-2 (Version None)
Quarter: 2004Q2

REPORT INFORMATION
  Report Type: 
  Country: None (occurrence: None)
  Receive Date: 20040402
  Receipt Date: 20030624
  Transmission Date: 20050107
  Serious: No
  Sender: FDA-Public Use
  Company Number: US-BRISTOL-MYERS SQUIBB COMPANY-12309811

PATIENT
  Sex: Male

DRUGS (12)
  1. HYDREA [Suspect]
     Indication: MALIGNANT MELANOMA
     Route: 048
     Dates: start: 20021009
  2. LEVOXYL [Concomitant]
     Dates: start: 20011010
  3. NEPHRO-VITE [Concomitant]
     Route: 048
     Dates: start: 20011010
  4. PAXIL [Concomitant]
     Dates: start: 20011010
  5. PHOSLO [Concomitant]
     Dosage: ^667 MG ONCE A DAY BEFORE MEALS + MAYBE 3X/DAY^ (UNSURE OF FREQUENCY)
     Dates: start: 20030320
  6. PROTONIX [Concomitant]
     Dates: start: 20011010
  7. TOPROL-XL [Concomitant]
     Dates: start: 20030501
  8. TRI-CHLOR [Concomitant]
     Dates: start: 20030320
  9. LISINOPRIL [Concomitant]
     Dosage: ^AT BEDTIME^
  10. LACTULOSE [Concomitant]
     Dosage: ^2 TBSP ONCE OR TWICE DAILY^
  11. VIOXX [Concomitant]
  12. PREDNISONE [Concomitant]
     Dosage: ^ONCE EVERY DAY OR 4 TIMES A DAY^ (UNSURE OF FREQUENCY)

REACTIONS (1)
  - RETINAL HAEMORRHAGE [None]
